FAERS Safety Report 7027462-8 (Version None)
Quarter: 2010Q4

REPORT INFORMATION
  Report Type: 
  Country: None (occurrence: None)
  Receive Date: 20101001
  Receipt Date: 20101001
  Transmission Date: 20110411
  Serious: Yes (Hospitalization)
  Sender: FDA-Public Use
  Company Number: None

PATIENT
  Age: 84 Year
  Sex: Female
  Weight: 53.8 kg

DRUGS (2)
  1. GEMCITABINE [Suspect]
     Dates: start: 20100819
  2. BORTEZOMIB [Suspect]
     Dates: start: 20100819

REACTIONS (4)
  - DIARRHOEA [None]
  - DISEASE PROGRESSION [None]
  - MEDIASTINAL MASS [None]
  - PERFORMANCE STATUS DECREASED [None]
